FAERS Safety Report 14291912 (Version 1)
Quarter: 2017Q4

REPORT INFORMATION
  Report Type: Spontaneous
  Country: US (occurrence: US)
  Receive Date: 20171215
  Receipt Date: 20171215
  Transmission Date: 20180321
  Serious: No
  Sender: FDA-Public Use
  Company Number: US-LUNDBECK-DKLU2030409

PATIENT
  Age: 16 Year
  Sex: Female

DRUGS (3)
  1. TYLENOL [Suspect]
     Active Substance: ACETAMINOPHEN
     Indication: MIGRAINE
     Route: 065
  2. ADVIL [Suspect]
     Active Substance: IBUPROFEN
     Indication: MIGRAINE
     Route: 065
  3. NORTHERA [Suspect]
     Active Substance: DROXIDOPA
     Indication: AUTONOMIC NERVOUS SYSTEM IMBALANCE
     Dosage: SCHEDULE C AND NOT TITRATING?1 CAPSULE AT 0900 OR 1000 AND 1 CAPSULE AT 1500
     Route: 048
     Dates: start: 20170419

REACTIONS (9)
  - Pain [Unknown]
  - Myalgia [Unknown]
  - Depressed mood [Recovered/Resolved]
  - Epistaxis [Recovered/Resolved]
  - Hypoaesthesia [Recovered/Resolved]
  - Headache [Recovered/Resolved]
  - Migraine [Unknown]
  - Hyperhidrosis [Recovered/Resolved]
  - Feeling hot [Recovered/Resolved]

NARRATIVE: CASE EVENT DATE: 2017
